FAERS Safety Report 8767987 (Version 1)
Quarter: 2012Q4

REPORT INFORMATION
  Report Type: 
  Country: GB (occurrence: GB)
  Receive Date: 20120906
  Receipt Date: 20120906
  Transmission Date: 20130627
  Serious: Yes (Disabling)
  Sender: FDA-Public Use
  Company Number: GB-TEVA-356097ISR

PATIENT
  Age: 61 Year
  Sex: Male
  Weight: 91.16 kg

DRUGS (2)
  1. WARFARIN [Suspect]
     Indication: ATRIAL FIBRILLATION
     Dosage: Variable dose from 2mg to 5mg
     Route: 048
     Dates: start: 20120701
  2. AMIODARONE [Suspect]
     Indication: ATRIAL FIBRILLATION
     Route: 048
     Dates: start: 20120701

REACTIONS (3)
  - Dyspnoea [Unknown]
  - Headache [Unknown]
  - Dizziness [Unknown]
